FAERS Safety Report 25832279 (Version 2)
Quarter: 2025Q4

REPORT INFORMATION
  Report Type: Spontaneous
  Country: EU (occurrence: EU)
  Receive Date: 20250922
  Receipt Date: 20251202
  Transmission Date: 20260118
  Serious: Yes (Other)
  Sender: BAYER HEALTHCARE PHARMACEUTICALS INC.
  Company Number: EU-BAYER-2025A124522

PATIENT
  Sex: Male

DRUGS (5)
  1. CIPROFLOXACIN [Suspect]
     Active Substance: CIPROFLOXACIN
  2. LEVOFLOXACIN [Concomitant]
     Active Substance: LEVOFLOXACIN
  3. LEVOFLOXACIN HEMIHYDRATE [Concomitant]
     Active Substance: LEVOFLOXACIN
     Dosage: 500 MG
     Route: 048
     Dates: start: 20201227
  4. CATAFLAM [Concomitant]
     Active Substance: DICLOFENAC POTASSIUM
     Dosage: 50 MG
     Dates: start: 20201227
  5. CLARITHROMYCIN [Concomitant]
     Active Substance: CLARITHROMYCIN
     Dosage: 500 MG
     Route: 048
     Dates: start: 20201227

REACTIONS (49)
  - Thrombosis [Not Recovered/Not Resolved]
  - Muscle rupture [Not Recovered/Not Resolved]
  - Neuropathy peripheral [Not Recovered/Not Resolved]
  - Pneumothorax [Not Recovered/Not Resolved]
  - Suicidal ideation [Not Recovered/Not Resolved]
  - Venous injury [None]
  - Palpitations [Not Recovered/Not Resolved]
  - Illness [None]
  - Tendon rupture [Not Recovered/Not Resolved]
  - Chondropathy [None]
  - Vascular rupture [None]
  - Superficial vein prominence [None]
  - Umbilical hernia [Not Recovered/Not Resolved]
  - Intervertebral disc protrusion [Not Recovered/Not Resolved]
  - Urinary incontinence [Not Recovered/Not Resolved]
  - Diarrhoea [Not Recovered/Not Resolved]
  - Tremor [Not Recovered/Not Resolved]
  - Muscle twitching [Not Recovered/Not Resolved]
  - Visual impairment [Not Recovered/Not Resolved]
  - Tinnitus [Not Recovered/Not Resolved]
  - Auditory disorder [Not Recovered/Not Resolved]
  - Tooth disorder [Not Recovered/Not Resolved]
  - Onycholysis [Not Recovered/Not Resolved]
  - Rash [Not Recovered/Not Resolved]
  - Photophobia [Not Recovered/Not Resolved]
  - Hepatic lesion [Not Recovered/Not Resolved]
  - Vein disorder [Not Recovered/Not Resolved]
  - Emotional distress [None]
  - Loss of personal independence in daily activities [Not Recovered/Not Resolved]
  - Mobility decreased [Not Recovered/Not Resolved]
  - Gait disturbance [Not Recovered/Not Resolved]
  - Bedridden [None]
  - Akathisia [Not Recovered/Not Resolved]
  - Cognitive disorder [Not Recovered/Not Resolved]
  - Fibromyalgia [None]
  - Mental disorder [Not Recovered/Not Resolved]
  - Neuralgia [Not Recovered/Not Resolved]
  - Musculoskeletal pain [Not Recovered/Not Resolved]
  - Alopecia [Not Recovered/Not Resolved]
  - Arthralgia [Not Recovered/Not Resolved]
  - Pain [Not Recovered/Not Resolved]
  - Insomnia [Not Recovered/Not Resolved]
  - Spinal pain [Not Recovered/Not Resolved]
  - Gastrointestinal disorder [None]
  - Fatigue [None]
  - General physical health deterioration [Not Recovered/Not Resolved]
  - Formication [None]
  - Lacrimation increased [Not Recovered/Not Resolved]
  - Cough [Not Recovered/Not Resolved]
